FAERS Safety Report 22085985 (Version 1)
Quarter: 2023Q1

REPORT INFORMATION
  Report Type: Spontaneous
  Country: US (occurrence: US)
  Receive Date: 20230310
  Receipt Date: 20230310
  Transmission Date: 20230417
  Serious: Yes (Other)
  Sender: FDA-Public Use
  Company Number: US-SA-SAC20230309001155

PATIENT
  Sex: Female

DRUGS (1)
  1. AUBAGIO [Suspect]
     Active Substance: TERIFLUNOMIDE
     Indication: Multiple sclerosis
     Dosage: 14 MG QD
     Route: 048
     Dates: start: 202106

REACTIONS (2)
  - Multiple sclerosis relapse [Unknown]
  - Hypoaesthesia [Unknown]

NARRATIVE: CASE EVENT DATE: 20230101
